FAERS Safety Report 7668503-4 (Version None)
Quarter: 2011Q3

REPORT INFORMATION
  Report Type: 
  Country: None (occurrence: None)
  Receive Date: 20110808
  Receipt Date: 20110729
  Transmission Date: 20111222
  Serious: Yes (Hospitalization)
  Sender: FDA-Public Use
  Company Number: DE-JNJFOC-20110710094

PATIENT
  Sex: Female
  Weight: 33.4 kg

DRUGS (8)
  1. REMICADE [Suspect]
     Route: 042
     Dates: start: 20100420, end: 20100420
  2. ANTIBIOTICS [Concomitant]
     Indication: CROHN'S DISEASE
  3. HUMIRA [Concomitant]
     Dates: start: 20110405
  4. AZATHIOPRINE [Concomitant]
  5. HUMIRA [Concomitant]
     Dates: start: 20110712
  6. REMICADE [Suspect]
     Indication: CROHN'S DISEASE
     Route: 042
     Dates: start: 20090317
  7. MESALAMINE [Concomitant]
     Route: 048
  8. CALCIUM ACETATE [Concomitant]

REACTIONS (1)
  - CONDITION AGGRAVATED [None]
